FAERS Safety Report 9329821 (Version 1)
Quarter: 2013Q2

REPORT INFORMATION
  Report Type: Spontaneous
  Country: US (occurrence: US)
  Receive Date: 20130604
  Receipt Date: 20130604
  Transmission Date: 20140414
  Serious: Yes (Hospitalization)
  Sender: FDA-Public Use
  Company Number: US-SANOFI-AVENTIS-2013SA003318

PATIENT
  Sex: Male

DRUGS (5)
  1. LANTUS SOLOSTAR [Suspect]
     Dosage: DOSE:12 UNIT(S)
     Route: 051
     Dates: start: 20111028
  2. LANTUS SOLOSTAR [Suspect]
     Dosage: DOSE:14 UNIT(S)
     Route: 051
     Dates: start: 20110114
  3. SOLOSTAR [Suspect]
     Dates: start: 20111028
  4. SOLOSTAR [Suspect]
     Dates: start: 20110114
  5. PREDNISONE [Suspect]

REACTIONS (4)
  - Bronchitis [Unknown]
  - Dyspnoea [Unknown]
  - Blood glucose increased [Unknown]
  - Headache [Unknown]
